FAERS Safety Report 10398881 (Version 1)
Quarter: 2014Q3

REPORT INFORMATION
  Report Type: Spontaneous
  Country: US (occurrence: US)
  Receive Date: 20140821
  Receipt Date: 20140821
  Transmission Date: 20150326
  Serious: Yes (Death, Hospitalization)
  Sender: FDA-Public Use
  Company Number: US-ROCHE-1448968

PATIENT
  Age: 5 Month
  Sex: Male

DRUGS (2)
  1. AVASTIN [Suspect]
     Active Substance: BEVACIZUMAB
     Indication: PULMONARY VEIN STENOSIS
     Route: 065
  2. GLEEVEC [Concomitant]
     Active Substance: IMATINIB MESYLATE
     Indication: PULMONARY VEIN STENOSIS

REACTIONS (4)
  - Pulmonary function test decreased [Fatal]
  - Pyrexia [Unknown]
  - Ill-defined disorder [Unknown]
  - Respiratory distress [Unknown]
